FAERS Safety Report 5336982-3 (Version None)
Quarter: 2007Q2

REPORT INFORMATION
  Report Type: 
  Country: None (occurrence: None)
  Receive Date: 20070523
  Receipt Date: 20070514
  Transmission Date: 20071010
  Serious: Yes (Hospitalization)
  Sender: FDA-Public Use
  Company Number: L07-GER-02081-01

PATIENT
  Age: 74 Year
  Sex: Male

DRUGS (5)
  1. CARBAMAZEPINE [Suspect]
     Indication: BIPOLAR I DISORDER
     Dosage: 600 MG QD
  2. CLOMIPRAMINE HCL [Concomitant]
  3. LIOTHYRONINE [Concomitant]
  4. LORAZEPAM [Concomitant]
  5. THYROXIN T3 [Concomitant]

REACTIONS (21)
  - ANHEDONIA [None]
  - ASTHENIA [None]
  - DELUSION [None]
  - DEPRESSED MOOD [None]
  - DISTRACTIBILITY [None]
  - ELEVATED MOOD [None]
  - FEELING ABNORMAL [None]
  - GRANDIOSITY [None]
  - HEPATIC ENZYME INCREASED [None]
  - INCOHERENT [None]
  - INSOMNIA [None]
  - IRRITABILITY [None]
  - MAJOR DEPRESSION [None]
  - MANIA [None]
  - MENTAL IMPAIRMENT [None]
  - NO THERAPEUTIC RESPONSE [None]
  - PSYCHOMOTOR HYPERACTIVITY [None]
  - PSYCHOMOTOR RETARDATION [None]
  - SLEEP DISORDER [None]
  - SPEECH DISORDER [None]
  - THINKING ABNORMAL [None]
